FAERS Safety Report 10066490 (Version 2)
Quarter: 2014Q2

REPORT INFORMATION
  Report Type: Report from Study
  Country: US (occurrence: US)
  Receive Date: 20140408
  Receipt Date: 20140521
  Transmission Date: 20141212
  Serious: Yes (Hospitalization, Other)
  Sender: FDA-Public Use
  Company Number: PHEH2014US006639

PATIENT
  Age: 11 Year
  Sex: Male
  Weight: 11.4 kg

DRUGS (13)
  1. TOBI [Suspect]
     Indication: CYSTIC FIBROSIS
     Dosage: 300 MG, TWICE A DAY
     Route: 055
     Dates: start: 20130213, end: 20130318
  2. TOBI [Suspect]
     Indication: PSEUDOMONAS INFECTION
     Dosage: 300 MG, BID
     Route: 055
     Dates: start: 20130715, end: 20130815
  3. TOBI [Suspect]
     Dosage: 300 MG, BID
     Route: 055
     Dates: start: 20131015
  4. CREON [Concomitant]
     Indication: MALABSORPTION
     Dosage: 3 DF
     Route: 048
  5. OMEPRAZOLE [Concomitant]
     Dosage: 5 MG, PER DAY
     Route: 048
  6. MIRLOX [Concomitant]
     Dosage: 8.5 MG, BID AS NEEDED
     Route: 048
  7. PULMOZYME [Concomitant]
     Dosage: 2.5 MG DAILY
     Route: 055
  8. AZITHROMYCIN [Concomitant]
     Dosage: 100 MG
     Route: 048
     Dates: start: 201305
  9. SODIUM CHLORIDE [Concomitant]
     Dosage: 6 ML, BID
     Dates: start: 201305
  10. ALBUTEROL [Concomitant]
     Dosage: 2 DF, BID (2 PUFFS) PRN
     Route: 055
  11. QVAR [Concomitant]
     Dosage: 2 PUFFS BID
     Route: 055
     Dates: start: 201302
  12. AQUADEKS [Concomitant]
     Dosage: 1 ML, BID
     Route: 048
  13. PERIACTIN [Concomitant]
     Dosage: 1 MG
     Route: 048
     Dates: start: 20140322

REACTIONS (6)
  - Respiratory disorder [Unknown]
  - Distal intestinal obstruction syndrome [Unknown]
  - Gastrointestinal disorder [Unknown]
  - Pseudomonas infection [Not Recovered/Not Resolved]
  - Lung disorder [Unknown]
  - Asthma [Unknown]
